FAERS Safety Report 13390443 (Version 2)
Quarter: 2017Q2

REPORT INFORMATION
  Report Type: Spontaneous
  Country: US (occurrence: US)
  Receive Date: 20170331
  Receipt Date: 20170424
  Transmission Date: 20170830
  Serious: No
  Sender: FDA-Public Use
  Company Number: US-PFIZER INC-2017138103

PATIENT
  Age: 79 Year
  Sex: Male

DRUGS (1)
  1. HYDROXYZINE HCL [Suspect]
     Active Substance: HYDROXYZINE HYDROCHLORIDE
     Indication: PRURITUS
     Dosage: 25 MG, AS NEEDED (1 PO TID )
     Route: 048
     Dates: start: 20161201, end: 20161213

REACTIONS (1)
  - Drug intolerance [Unknown]
